FAERS Safety Report 16214890 (Version 1)
Quarter: 2019Q2

REPORT INFORMATION
  Report Type: Spontaneous
  Country: US (occurrence: US)
  Receive Date: 20190418
  Receipt Date: 20190418
  Transmission Date: 20190711
  Serious: Yes (Other)
  Sender: FDA-Public Use
  Company Number: None

PATIENT
  Age: 65 Year
  Sex: Female
  Weight: 63 kg

DRUGS (5)
  1. LANTUS SOLOSTAR ER [Concomitant]
  2. GLANDULARS [Concomitant]
  3. MULTIPLE ORGANIC WHOLE FOOD SUPPLEMENTS [Concomitant]
  4. VICTOZA [Suspect]
     Active Substance: LIRAGLUTIDE
     Indication: TYPE 2 DIABETES MELLITUS
     Dosage: ?          QUANTITY:1 INJECTION(S);?
     Route: 058
     Dates: start: 20190414, end: 20190417
  5. DIGESTIVE ENZYMES [Concomitant]
     Active Substance: UNSPECIFIED INGREDIENT

REACTIONS (16)
  - Hypophagia [None]
  - Eructation [None]
  - Asthenia [None]
  - Product complaint [None]
  - Nausea [None]
  - Decreased appetite [None]
  - Vomiting [None]
  - Flatulence [None]
  - Abdominal pain upper [None]
  - Abdominal discomfort [None]
  - Lip blister [None]
  - Pruritus [None]
  - Heart rate increased [None]
  - Fatigue [None]
  - Headache [None]
  - Dehydration [None]

NARRATIVE: CASE EVENT DATE: 20190417
